FAERS Safety Report 7349172-X (Version None)
Quarter: 2011Q1

REPORT INFORMATION
  Report Type: 
  Country: None (occurrence: None)
  Receive Date: 20110303
  Receipt Date: 20110217
  Transmission Date: 20110831
  Serious: Yes (Hospitalization)
  Sender: FDA-Public Use
  Company Number: GER/GER/11/0017537

PATIENT
  Age: 84 Year
  Sex: Female
  Weight: 80 kg

DRUGS (9)
  1. CITALOPRAM (CITALOPRAM) [Suspect]
     Indication: PRODUCT USED FOR UNKNOWN INDICATION
     Dosage: 10 MG, 2 IN 1 D, ORAL
     Route: 048
     Dates: start: 20080101
  2. OXYCODONE HCL [Concomitant]
  3. BERLOSIN (METAMIZOLE SODIUM) [Concomitant]
  4. RIVAROXABAN [Suspect]
     Indication: THROMBOSIS PROPHYLAXIS
     Dosage: 10 MG, 1 IN 1 D, ORAL
     Route: 048
     Dates: start: 20091203, end: 20100119
  5. BLOPRESS (CANDESARTAN CILEXETIL) [Concomitant]
  6. AERIUS (EBASTINE) [Concomitant]
  7. LERCANIDIPINE [Concomitant]
  8. BLOPRESID (BLOPRESS PLUS) [Concomitant]
  9. BISO (BISOPROLOL FUMARATE) [Concomitant]

REACTIONS (4)
  - IMPAIRED HEALING [None]
  - WOUND COMPLICATION [None]
  - SCAR [None]
  - POST PROCEDURAL HAEMATOMA [None]
